FAERS Safety Report 24017336 (Version 1)
Quarter: 2024Q2

REPORT INFORMATION
  Report Type: Spontaneous
  Country: US (occurrence: US)
  Receive Date: 20240627
  Receipt Date: 20240627
  Transmission Date: 20240716
  Serious: No
  Sender: FDA-Public Use
  Company Number: US-SA-2021SA188596

PATIENT
  Age: 19 Year
  Sex: Male

DRUGS (1)
  1. ALLEGRA ALLERGY [Suspect]
     Active Substance: FEXOFENADINE HYDROCHLORIDE
     Indication: Product used for unknown indication
     Dosage: DOSE DESCRIPTION : DRUG STRUCTURE DOSAGE : 180 MILLIGRAMS DRUG INTERVAL DOSAGE : UTR DRUG TREATMENT
     Route: 065

REACTIONS (1)
  - Dysphagia [Unknown]
